FAERS Safety Report 7577882-8 (Version None)
Quarter: 2011Q2

REPORT INFORMATION
  Report Type: 
  Country: None (occurrence: None)
  Receive Date: 20110621
  Receipt Date: 20110519
  Transmission Date: 20111010
  Serious: Yes (Death, Hospitalization)
  Sender: FDA-Public Use
  Company Number: 2010003077

PATIENT
  Age: 58 Year
  Sex: Male

DRUGS (10)
  1. PRIMPERAN INJ [Concomitant]
  2. FOLIC ACID [Concomitant]
  3. SPIRONOLACTONE [Concomitant]
  4. TRAMADOL HCL [Concomitant]
  5. SORAFENIB (SORAFENIB) TABLET [Suspect]
     Indication: HEPATIC NEOPLASM MALIGNANT
     Dosage: 400 MG, BID, ORAL
     Route: 048
     Dates: start: 20100608, end: 20100630
  6. IMODIUM [Concomitant]
  7. ERLOTINIB HYDROCHLORIDE [Suspect]
     Indication: HEPATIC NEOPLASM MALIGNANT
     Dosage: 150 MG, UID/QD, ORAL
     Route: 048
     Dates: start: 20100608, end: 20100630
  8. RAMIPRIL [Concomitant]
  9. INSULIN LISPRO (INSULIN LISPRO) [Concomitant]
  10. METOCLOPRAMIDE [Concomitant]

REACTIONS (4)
  - ENCEPHALOPATHY [None]
  - GASTROINTESTINAL HAEMORRHAGE [None]
  - HAEMOGLOBIN DECREASED [None]
  - PROTHROMBIN TIME PROLONGED [None]
